FAERS Safety Report 12316365 (Version 1)
Quarter: 2016Q2

REPORT INFORMATION
  Report Type: Report from Study
  Country: US (occurrence: US)
  Receive Date: 20160429
  Receipt Date: 20160429
  Transmission Date: 20160815
  Serious: Yes (Other)
  Sender: FDA-Public Use
  Company Number: US-ABBVIE-16P-163-1599766-00

PATIENT
  Sex: Male

DRUGS (2)
  1. MODERIBA [Suspect]
     Active Substance: RIBAVIRIN
     Indication: CHRONIC HEPATITIS C
     Route: 048
     Dates: start: 20160225, end: 20160302
  2. VIEKIRA PAK [Suspect]
     Active Substance: DASABUVIR\OMBITASVIR\PARITAPREVIR\RITONAVIR
     Indication: HEPATITIS C
     Route: 048
     Dates: start: 20160225

REACTIONS (4)
  - Muscle spasms [Not Recovered/Not Resolved]
  - Spinal cord compression [Recovered/Resolved]
  - Hypoaesthesia [Recovered/Resolved]
  - Therapeutic response unexpected [Not Recovered/Not Resolved]
